FAERS Safety Report 4620705-7 (Version None)
Quarter: 2005Q1

REPORT INFORMATION
  Report Type: 
  Country: None (occurrence: None)
  Receive Date: 20050325
  Receipt Date: 20050310
  Transmission Date: 20050727
  Serious: Yes (Hospitalization)
  Sender: FDA-Public Use
  Company Number: 2005S1001135

PATIENT
  Age: 34 Year
  Sex: Female
  Weight: 77.1115 kg

DRUGS (6)
  1. CLONIDINE HYDROCHLORIDE TABLETS, USP (0.1 MG) [Suspect]
     Dosage: 2 MG; X1; PO
     Route: 048
     Dates: start: 20050107, end: 20050107
  2. RISPERDAL [Suspect]
     Dosage: 160 MG; X1; PO
     Route: 048
     Dates: start: 20050107, end: 20050107
  3. ESCITALOPRAM [Concomitant]
  4. VENLAFAXINE [Concomitant]
  5. HYDROCHLORIDE [Concomitant]
  6. CLONAZEPAM [Concomitant]

REACTIONS (4)
  - BLOOD PRESSURE DECREASED [None]
  - LOSS OF CONSCIOUSNESS [None]
  - MULTIPLE DRUG OVERDOSE [None]
  - SUICIDE ATTEMPT [None]
